FAERS Safety Report 14734206 (Version 1)
Quarter: 2018Q2

REPORT INFORMATION
  Report Type: Report from Study
  Country: DE (occurrence: DE)
  Receive Date: 20180409
  Receipt Date: 20180409
  Transmission Date: 20180711
  Serious: Yes (Other)
  Sender: FDA-Public Use
  Company Number: DE-TEVA-2018-DE-877090

PATIENT
  Age: 61 Year
  Sex: Male
  Weight: 70 kg

DRUGS (8)
  1. HEPARIN [Suspect]
     Active Substance: HEPARIN SODIUM
     Indication: ANTICOAGULANT THERAPY
     Route: 065
  2. SUFENTANIL [Suspect]
     Active Substance: SUFENTANIL
     Indication: SEDATION
     Route: 065
  3. PROPOFOL. [Suspect]
     Active Substance: PROPOFOL
     Indication: SEDATION
     Route: 065
  4. NIMODIPINE. [Suspect]
     Active Substance: NIMODIPINE
     Indication: CEREBRAL VASOCONSTRICTION
     Route: 048
  5. MIDAZOLAM [Suspect]
     Active Substance: MIDAZOLAM HYDROCHLORIDE
     Indication: SEDATION
     Route: 065
  6. NIMODIPINE. [Suspect]
     Active Substance: NIMODIPINE
     Indication: CEREBRAL VASOCONSTRICTION
     Dosage: 0.2 MG/ML- INFUSION RATE- 0.5 MG/HOUR
     Route: 013
  7. SODIUM CHLORIDE. [Concomitant]
     Active Substance: SODIUM CHLORIDE
     Indication: VEHICLE SOLUTION USE
     Dosage: AT A RATE OF 22.5 ML/HOUR
     Route: 013
  8. KETAMINE [Suspect]
     Active Substance: KETAMINE
     Indication: SEDATION
     Route: 065

REACTIONS (2)
  - Heparin-induced thrombocytopenia [Recovering/Resolving]
  - Hypotension [Recovering/Resolving]
